FAERS Safety Report 6191564-9 (Version None)
Quarter: 2009Q2

REPORT INFORMATION
  Report Type: 
  Country: None (occurrence: None)
  Receive Date: 20090515
  Receipt Date: 20090513
  Transmission Date: 20091009
  Serious: Yes (Death)
  Sender: FDA-Public Use
  Company Number: JP-BAYER-200911516BYL

PATIENT
  Age: 57 Year
  Sex: Female
  Weight: 47 kg

DRUGS (7)
  1. FLUDARA [Suspect]
     Indication: ACUTE MYELOID LEUKAEMIA
     Dosage: AS USED: 40 MG  UNIT DOSE: 50 MG
     Route: 042
     Dates: start: 20080917, end: 20080922
  2. CYCLOPHOSPHAMIDE [Concomitant]
     Indication: ACUTE MYELOID LEUKAEMIA
     Dosage: AS USED: 2200 MG
     Route: 042
     Dates: start: 20080917, end: 20080917
  3. CYCLOSPORINE [Concomitant]
     Indication: PROPHYLAXIS AGAINST GRAFT VERSUS HOST DISEASE
     Dosage: TOTAL DAILY DOSE: 110 MG
     Route: 042
     Dates: start: 20080914, end: 20081027
  4. METHOTREXATE [Concomitant]
     Indication: PROPHYLAXIS AGAINST GRAFT VERSUS HOST DISEASE
     Dosage: AS USED: 9 MG
     Route: 042
     Dates: start: 20080927, end: 20080927
  5. METHOTREXATE [Concomitant]
     Dosage: AS USED: 9 MG
     Route: 042
     Dates: start: 20081005, end: 20081005
  6. CONCENTRATED RED CELLS [Concomitant]
     Indication: PACKED RED BLOOD CELL TRANSFUSION
     Route: 042
     Dates: start: 20080924, end: 20090102
  7. PLATELETS [Concomitant]
     Indication: PLATELET TRANSFUSION
     Route: 042
     Dates: start: 20080924, end: 20090102

REACTIONS (2)
  - ACUTE MYELOID LEUKAEMIA [None]
  - ENGRAFT FAILURE [None]
